FAERS Safety Report 6227450-5 (Version None)
Quarter: 2009Q2

REPORT INFORMATION
  Report Type: 
  Country: None (occurrence: None)
  Receive Date: 20090612
  Receipt Date: 20090601
  Transmission Date: 20091009
  Serious: No
  Sender: FDA-Public Use
  Company Number: JP-ELI_LILLY_AND_COMPANY-JP200906000285

PATIENT
  Age: 26 Year
  Sex: Female

DRUGS (3)
  1. ZYPREXA [Suspect]
     Dosage: 20 MG, DAILY (1/D)
     Route: 048
     Dates: start: 20090401, end: 20090501
  2. DEPAKENE [Concomitant]
     Indication: SCHIZOPHRENIA
     Dates: start: 20090401, end: 20090501
  3. SERENACE [Concomitant]
     Indication: SCHIZOPHRENIA
     Dates: start: 20090401

REACTIONS (3)
  - GRANULOCYTE COUNT DECREASED [None]
  - HYPERTHERMIA [None]
  - LIVER FUNCTION TEST ABNORMAL [None]
